FAERS Safety Report 17414703 (Version 1)
Quarter: 2020Q1

REPORT INFORMATION
  Report Type: Spontaneous
  Country: ES (occurrence: ES)
  Receive Date: 20200213
  Receipt Date: 20200213
  Transmission Date: 20200409
  Serious: Yes (Other)
  Sender: FDA-Public Use
  Company Number: ES-MYLANLABS-2020M1015636

PATIENT
  Age: 51 Year
  Sex: Female
  Weight: 65 kg

DRUGS (2)
  1. NEOBRUFEN 600 MG GRANULADO EFERVESCENTE [Suspect]
     Active Substance: IBUPROFEN
     Indication: MALAISE
     Dosage: 600MG 2 VECES AL DIA
     Route: 065
     Dates: start: 20191205, end: 20191208
  2. FLUIMUCIL [Suspect]
     Active Substance: ACETYLCYSTEINE
     Indication: INCREASED VISCOSITY OF UPPER RESPIRATORY SECRETION
     Dosage: 600MG 1 VEZ AL D?A
     Route: 048
     Dates: start: 20191205, end: 20191207

REACTIONS (3)
  - Gingival pain [Recovered/Resolved]
  - Oral pain [Recovered/Resolved]
  - Gingivitis [Recovered/Resolved]

NARRATIVE: CASE EVENT DATE: 20191206
